FAERS Safety Report 22976992 (Version 2)
Quarter: 2024Q1

REPORT INFORMATION
  Report Type: Spontaneous
  Country: US (occurrence: US)
  Receive Date: 20230925
  Receipt Date: 20240308
  Transmission Date: 20240409
  Serious: No
  Sender: FDA-Public Use
  Company Number: US-SANOFI-01767049

PATIENT
  Age: 18 Year

DRUGS (1)
  1. DUPIXENT [Suspect]
     Active Substance: DUPILUMAB
     Indication: Dermatitis atopic
     Dosage: 200 MG, QOW
     Route: 058

REACTIONS (1)
  - Off label use [Unknown]
